FAERS Safety Report 10059965 (Version 1)
Quarter: 2014Q2

REPORT INFORMATION
  Report Type: Spontaneous
  Country: ES (occurrence: ES)
  Receive Date: 20140404
  Receipt Date: 20140404
  Transmission Date: 20141212
  Serious: Yes (Hospitalization)
  Sender: FDA-Public Use
  Company Number: ES-GLAXOSMITHKLINE-B0981941A

PATIENT
  Age: 52 Year
  Sex: Female

DRUGS (6)
  1. REVOLADE [Suspect]
     Indication: EVANS SYNDROME
     Dosage: 25MG PER DAY
     Route: 048
     Dates: start: 20130422, end: 20130429
  2. MABTHERA [Suspect]
     Indication: EVANS SYNDROME
     Dosage: 500MG PER DAY
     Route: 042
     Dates: start: 20130425, end: 20130516
  3. GABAPENTIN [Concomitant]
     Indication: NEURALGIA
     Dosage: 300MG THREE TIMES PER DAY
     Route: 048
     Dates: start: 20130426
  4. HYDROCORTISONE [Concomitant]
     Indication: EVANS SYNDROME
     Dosage: 100MG PER DAY
     Route: 048
     Dates: start: 20130426
  5. LORAZEPAM [Concomitant]
     Indication: INSOMNIA
     Route: 048
     Dates: start: 20130424
  6. METHYLPREDNISOLONE [Concomitant]
     Indication: EVANS SYNDROME
     Dosage: 80MG PER DAY
     Route: 048
     Dates: start: 20130426

REACTIONS (2)
  - Hepatitis [Recovering/Resolving]
  - Human herpesvirus 6 infection [Recovered/Resolved]
